FAERS Safety Report 21899565 (Version 1)
Quarter: 2023Q1

REPORT INFORMATION
  Report Type: Spontaneous
  Country: US (occurrence: US)
  Receive Date: 20230123
  Receipt Date: 20230123
  Transmission Date: 20230417
  Serious: No
  Sender: FDA-Public Use
  Company Number: US-NOVOPROD-953714

PATIENT
  Age: 68 Year
  Sex: Female

DRUGS (1)
  1. OZEMPIC [Suspect]
     Active Substance: SEMAGLUTIDE
     Indication: Product used for unknown indication
     Dosage: 0.5MG ONCE WEEKLY
     Route: 058
     Dates: start: 20220502

REACTIONS (8)
  - Vitreous floaters [Not Recovered/Not Resolved]
  - Feeding disorder [Recovered/Resolved]
  - Influenza like illness [Recovered/Resolved]
  - Constipation [Not Recovered/Not Resolved]
  - Nausea [Recovered/Resolved]
  - Eructation [Recovered/Resolved]
  - Flatulence [Recovered/Resolved]
  - Diarrhoea [Recovered/Resolved]

NARRATIVE: CASE EVENT DATE: 20220101
